FAERS Safety Report 5546773-6 (Version None)
Quarter: 2007Q4

REPORT INFORMATION
  Report Type: 
  Country: None (occurrence: None)
  Receive Date: 20071123
  Receipt Date: 20070329
  Transmission Date: 20080405
  Serious: Yes (Life-Threatening, Other)
  Sender: FDA-Public Use
  Company Number: US-JNJFOC-20070102948

PATIENT
  Age: 49 Year
  Sex: Female

DRUGS (6)
  1. LEVAQUIN [Suspect]
     Indication: LARYNGITIS
     Dosage: ORAL
     Route: 048
     Dates: start: 20061121, end: 20061121
  2. LEVAQUIN [Suspect]
     Indication: PHARYNGOLARYNGEAL PAIN
     Dosage: ORAL
     Route: 048
     Dates: start: 20061121, end: 20061121
  3. LEVAQUIN [Suspect]
     Indication: UPPER RESPIRATORY TRACT INFECTION
     Dosage: ORAL
     Route: 048
     Dates: start: 20061121, end: 20061121
  4. BEVACIZUMAB (ALL OTHER THERAPEUTIC PRODUCTS) UNSPECIFIED [Suspect]
     Indication: BREAST CANCER METASTATIC
     Dosage: 870 MG, 1 IN 2 WEEK, INTRAVENOUS
     Route: 042
     Dates: start: 20061026
  5. ABRAXANE [Suspect]
     Indication: BREAST CANCER METASTATIC
     Dosage: 260 MG, 1 IN 1 WEEK, INTRAVENOUS
     Route: 042
     Dates: start: 20061026
  6. TYLENOL (PARACETAMOL) UNSPECIFIED [Concomitant]

REACTIONS (1)
  - ANAPHYLACTIC REACTION [None]
